FAERS Safety Report 11534581 (Version 1)
Quarter: 2015Q3

REPORT INFORMATION
  Report Type: Spontaneous
  Country: US (occurrence: None)
  Receive Date: 20150921
  Receipt Date: 20150921
  Transmission Date: 20151125
  Serious: Yes (Death)
  Sender: FDA-Public Use
  Company Number: None

PATIENT
  Age: 89 Year
  Sex: Male

DRUGS (1)
  1. NARCAN [Suspect]
     Active Substance: NALOXONE HYDROCHLORIDE
     Indication: INCORRECT DOSE ADMINISTERED
     Dates: start: 20141003, end: 20141030

REACTIONS (6)
  - Myocardial infarction [None]
  - Hypotension [None]
  - Abnormal behaviour [None]
  - Cardiac arrest [None]
  - Arrhythmia [None]
  - Bradycardia [None]

NARRATIVE: CASE EVENT DATE: 20141030
